FAERS Safety Report 8224965-5 (Version None)
Quarter: 2012Q1

REPORT INFORMATION
  Report Type: 
  Country: None (occurrence: None)
  Receive Date: 20120319
  Receipt Date: 20120307
  Transmission Date: 20120608
  Serious: Yes (Other)
  Sender: FDA-Public Use
  Company Number: 2011SP050701

PATIENT
  Age: 71 Year
  Sex: Male

DRUGS (15)
  1. GARASONE [Suspect]
     Indication: EAR INFECTION
  2. PAXIL [Concomitant]
  3. AVODART [Concomitant]
  4. SYMBICORT [Concomitant]
  5. BIAXIN [Suspect]
     Indication: PRODUCT USED FOR UNKNOWN INDICATION
  6. ACEBUTOLOL [Concomitant]
  7. RABEPRAZOLE SODIUM [Concomitant]
  8. ALBUTEROL [Concomitant]
  9. HYTRIN [Concomitant]
  10. INDAPAMID [Concomitant]
  11. VENTOLIN [Concomitant]
  12. SPIRIVA [Concomitant]
  13. LOZIDE /00340101/ [Concomitant]
  14. ALTACE [Concomitant]
  15. CELEBREX [Concomitant]

REACTIONS (2)
  - AMNESIA [None]
  - CONFUSIONAL STATE [None]
